FAERS Safety Report 15148050 (Version 1)
Quarter: 2018Q3

REPORT INFORMATION
  Report Type: Spontaneous
  Country: US (occurrence: US)
  Receive Date: 20180716
  Receipt Date: 20180716
  Transmission Date: 20181010
  Serious: Yes (Hospitalization)
  Sender: FDA-Public Use
  Company Number: US-LEXICON PHARMACEUTICALS, INC-18-1606-00839

PATIENT
  Age: 77 Year
  Sex: Male

DRUGS (2)
  1. SSA [Concomitant]
     Active Substance: UNSPECIFIED INGREDIENT
  2. TELOTRISTAT ETHYL [Suspect]
     Active Substance: TELOTRISTAT ETHYL
     Indication: CARCINOID SYNDROME
     Route: 048
     Dates: start: 20180517

REACTIONS (4)
  - Upper respiratory tract congestion [Recovering/Resolving]
  - Productive cough [Recovering/Resolving]
  - Gait inability [Unknown]
  - Body temperature increased [Recovering/Resolving]

NARRATIVE: CASE EVENT DATE: 20180628
